FAERS Safety Report 21322921 (Version 1)
Quarter: 2022Q3

REPORT INFORMATION
  Report Type: Report from Study
  Country: BR (occurrence: BR)
  Receive Date: 20220912
  Receipt Date: 20220912
  Transmission Date: 20221027
  Serious: Yes (Hospitalization, Other)
  Sender: FDA-Public Use
  Company Number: BR-ABBVIE-22K-020-4526601-00

PATIENT
  Sex: Female

DRUGS (1)
  1. RINVOQ [Suspect]
     Active Substance: UPADACITINIB
     Indication: Rheumatoid arthritis
     Route: 048
     Dates: start: 20210127

REACTIONS (4)
  - Bedridden [Not Recovered/Not Resolved]
  - Hospitalisation [Not Recovered/Not Resolved]
  - Gout [Not Recovered/Not Resolved]
  - Unevaluable event [Not Recovered/Not Resolved]
